FAERS Safety Report 15505646 (Version 1)
Quarter: 2018Q4

REPORT INFORMATION
  Report Type: Spontaneous
  Country: US (occurrence: US)
  Receive Date: 20181010
  Receipt Date: 20181010
  Transmission Date: 20190205
  Serious: No
  Sender: FDA-Public Use
  Company Number: None

PATIENT
  Age: 59 Year
  Sex: Female
  Weight: 92.53 kg

DRUGS (1)
  1. OCEAN SALINE NASAL SPRAY [Suspect]
     Active Substance: SODIUM CHLORIDE
     Indication: NASAL CONGESTION
     Dosage: ?          OTHER STRENGTH:3.5 OUNCE;OTHER DOSE:2 SQUIRTS;OTHER ROUTE:EACH NOSTRIL?
     Dates: start: 20160101, end: 20180924

REACTIONS (3)
  - Epistaxis [None]
  - Infection [None]
  - Mucosal discolouration [None]
